FAERS Safety Report 18537955 (Version 1)
Quarter: 2020Q4

REPORT INFORMATION
  Report Type: Spontaneous
  Country: FR (occurrence: FR)
  Receive Date: 20201123
  Receipt Date: 20201123
  Transmission Date: 20210114
  Serious: Yes (Other)
  Sender: FDA-Public Use
  Company Number: FR-GILEAD-2020-0475709

PATIENT
  Age: 78 Year
  Sex: Female
  Weight: 55 kg

DRUGS (1)
  1. YESCARTA [Suspect]
     Active Substance: AXICABTAGENE CILOLEUCEL
     Indication: ADULT T-CELL LYMPHOMA/LEUKAEMIA RECURRENT
     Route: 042
     Dates: start: 20200512

REACTIONS (4)
  - Cytokine release syndrome [Recovering/Resolving]
  - Cognitive disorder [Unknown]
  - Cytopenia [Recovered/Resolved]
  - Neutropenia [Unknown]

NARRATIVE: CASE EVENT DATE: 20200516
